FAERS Safety Report 25714324 (Version 1)
Quarter: 2025Q3

REPORT INFORMATION
  Report Type: Spontaneous
  Country: GB (occurrence: GB)
  Receive Date: 20250822
  Receipt Date: 20250822
  Transmission Date: 20251020
  Serious: Yes (Other)
  Sender: GLENMARK
  Company Number: GB-GLENMARK PHARMACEUTICALS-2025GMK101705

PATIENT
  Sex: Male

DRUGS (6)
  1. ATOMOXETINE HYDROCHLORIDE [Suspect]
     Active Substance: ATOMOXETINE HYDROCHLORIDE
     Indication: Product used for unknown indication
     Dosage: 1 DOSAGE FORM, OD (FIRST TWO WEEKS)
     Route: 048
     Dates: start: 20250527, end: 20250621
  2. ATOMOXETINE HYDROCHLORIDE [Suspect]
     Active Substance: ATOMOXETINE HYDROCHLORIDE
     Route: 048
     Dates: start: 20250623, end: 20250728
  3. DYMISTA [Concomitant]
     Active Substance: AZELASTINE HYDROCHLORIDE\FLUTICASONE PROPIONATE
     Indication: Seasonal allergy
     Dosage: 2 DOSAGE FORM, BID-- 3 X 120 DOSE (LAST PRESCRIBED: 17 JULY 2025)
     Route: 045
  4. DYMISTA [Concomitant]
     Active Substance: AZELASTINE HYDROCHLORIDE\FLUTICASONE PROPIONATE
     Indication: Sinus disorder
  5. IPRATROPIUM BROMIDE [Concomitant]
     Active Substance: IPRATROPIUM BROMIDE
     Indication: Seasonal allergy
     Dosage: 2 DOSAGE FORM, TID (TWO SPRAYS TO BE USED IN EACH NOSTRIL THREE TIMES A DAY 3 X 180 DOSE) LAST PRESC
     Route: 045
  6. IPRATROPIUM BROMIDE [Concomitant]
     Active Substance: IPRATROPIUM BROMIDE
     Indication: Sinus disorder

REACTIONS (9)
  - Haematochezia [Recovering/Resolving]
  - Mucous stools [Unknown]
  - Withdrawal syndrome [Recovering/Resolving]
  - Fatigue [Recovering/Resolving]
  - Hypersomnia [Recovering/Resolving]
  - Depression [Recovering/Resolving]
  - Abnormal faeces [Unknown]
  - Defaecation urgency [Unknown]
  - Constipation [Recovering/Resolving]

NARRATIVE: CASE EVENT DATE: 20250620
